FAERS Safety Report 10174173 (Version 1)
Quarter: 2014Q2

REPORT INFORMATION
  Report Type: Spontaneous
  Country: US (occurrence: None)
  Receive Date: 20140514
  Receipt Date: 20140514
  Transmission Date: 20141212
  Serious: Yes (Other)
  Sender: FDA-Public Use
  Company Number: None

PATIENT
  Age: 36 Year
  Sex: Female
  Weight: 82 kg

DRUGS (8)
  1. FOSPHENYTOIN [Suspect]
     Indication: PRE-ECLAMPSIA
     Route: 042
     Dates: start: 20140305
  2. FIORICET [Concomitant]
  3. AZITHROMYCIN [Concomitant]
  4. BISACODYL [Concomitant]
  5. OEFAZOLIN [Concomitant]
  6. CEFTRIAXONE [Concomitant]
  7. CITRIC ACID/SODIUM CITRATE [Concomitant]
  8. DIPHENHYDRAMINE [Concomitant]

REACTIONS (4)
  - Nystagmus [None]
  - Agitation [None]
  - Deafness unilateral [None]
  - Tinnitus [None]
